FAERS Safety Report 13972870 (Version 1)
Quarter: 2017Q3

REPORT INFORMATION
  Report Type: Spontaneous
  Country: US (occurrence: None)
  Receive Date: 20170914
  Receipt Date: 20170914
  Transmission Date: 20171128
  Serious: No
  Sender: FDA-Public Use
  Company Number: None

PATIENT
  Age: 38 Year
  Sex: Female

DRUGS (1)
  1. LEUPROLIDE [Suspect]
     Active Substance: LEUPROLIDE
     Indication: INFERTILITY
     Dosage: 5-20 UNITS DAILY (CALNDAR) SQ
     Route: 058
     Dates: start: 20170823

REACTIONS (2)
  - Headache [None]
  - Hypertension [None]

NARRATIVE: CASE EVENT DATE: 20170910
